FAERS Safety Report 6880562-5 (Version None)
Quarter: 2010Q3

REPORT INFORMATION
  Report Type: 
  Country: None (occurrence: None)
  Receive Date: 20100728
  Receipt Date: 20100715
  Transmission Date: 20110219
  Serious: Yes (Death)
  Sender: FDA-Public Use
  Company Number: US-GENZYME-FABR-1001193

PATIENT
  Sex: Male
  Weight: 88.6 kg

DRUGS (5)
  1. FABRAZYME [Suspect]
     Indication: FABRY'S DISEASE
     Dosage: 90 MG, Q4W
     Route: 042
     Dates: end: 20100201
  2. FABRAZYME [Suspect]
     Dosage: 90 MG, Q2W
     Route: 042
     Dates: start: 20070904
  3. BENADRYL [Concomitant]
     Indication: PREMEDICATION
  4. ACETAMINOPHEN [Concomitant]
     Indication: PREMEDICATION
  5. ASPIRIN [Concomitant]
     Indication: PRODUCT USED FOR UNKNOWN INDICATION

REACTIONS (2)
  - BRAIN MASS [None]
  - MYOCARDIAL INFARCTION [None]
